FAERS Safety Report 9134236 (Version 4)
Quarter: 2013Q2

REPORT INFORMATION
  Report Type: Spontaneous
  Country: US (occurrence: US)
  Receive Date: 20130304
  Receipt Date: 20130509
  Transmission Date: 20140414
  Serious: No
  Sender: FDA-Public Use
  Company Number: US-BIOGENIDEC-2013BI018685

PATIENT
  Age: 65 Year
  Sex: Female

DRUGS (1)
  1. TYSABRI [Suspect]
     Indication: MULTIPLE SCLEROSIS
     Route: 042
     Dates: start: 20080929

REACTIONS (7)
  - Herpes zoster [Not Recovered/Not Resolved]
  - Dermatitis bullous [Not Recovered/Not Resolved]
  - Device related infection [Unknown]
  - Pain of skin [Not Recovered/Not Resolved]
  - Swelling [Recovered/Resolved]
  - Blister [Not Recovered/Not Resolved]
  - Flushing [Not Recovered/Not Resolved]
